FAERS Safety Report 8277382-6 (Version None)
Quarter: 2012Q2

REPORT INFORMATION
  Report Type: 
  Country: None (occurrence: None)
  Receive Date: 20120412
  Receipt Date: 20120403
  Transmission Date: 20120825
  Serious: Yes (Hospitalization, Other)
  Sender: FDA-Public Use
  Company Number: US-ASTRAZENECA-2011SE63609

PATIENT
  Age: 52 Year
  Sex: Female

DRUGS (4)
  1. SYMBICORT [Suspect]
     Indication: ASTHMA
     Dosage: TWO PUFFS A DAY
     Route: 055
     Dates: start: 20090101
  2. SYMBICORT [Suspect]
     Dosage: 160/4.5 MCG, UNKNOWN
     Route: 055
  3. ALBUTEROL [Concomitant]
  4. SYMBICORT [Suspect]
     Dosage: THREE PUFFS, UNKNOWN
     Route: 055

REACTIONS (12)
  - INTENTIONAL DRUG MISUSE [None]
  - DYSPNOEA [None]
  - STRESS [None]
  - OSTEOARTHRITIS [None]
  - BRONCHIAL SECRETION RETENTION [None]
  - INCORRECT DOSE ADMINISTERED [None]
  - CHRONIC OBSTRUCTIVE PULMONARY DISEASE [None]
  - CHEST DISCOMFORT [None]
  - JOINT RANGE OF MOTION DECREASED [None]
  - INCREASED UPPER AIRWAY SECRETION [None]
  - PRODUCTIVE COUGH [None]
  - FOOT DEFORMITY [None]
